FAERS Safety Report 15478654 (Version 2)
Quarter: 2018Q4

REPORT INFORMATION
  Report Type: Spontaneous
  Country: US (occurrence: US)
  Receive Date: 20181009
  Receipt Date: 20181130
  Transmission Date: 20190205
  Serious: No
  Sender: FDA-Public Use
  Company Number: US-ASTRAZENECA-2018SF23881

PATIENT
  Sex: Female

DRUGS (1)
  1. TUDORZA PRESSAIR [Suspect]
     Active Substance: ACLIDINIUM BROMIDE
     Indication: BRONCHIECTASIS
     Dosage: 0 MCG 1 PUFF DAILY AND IF NEEDED CAN TAKE A SECOND PUFF LATER IN THE DAY
     Route: 055

REACTIONS (10)
  - Visual impairment [Unknown]
  - Device malfunction [Unknown]
  - Product dose omission [Unknown]
  - Irritability [Unknown]
  - Dysphonia [Unknown]
  - Intentional device misuse [Unknown]
  - Productive cough [Unknown]
  - Off label use [Unknown]
  - Feeling abnormal [Unknown]
  - Fatigue [Unknown]

NARRATIVE: CASE EVENT DATE: 20180921
